FAERS Safety Report 18567476 (Version 2)
Quarter: 2020Q4

REPORT INFORMATION
  Report Type: Spontaneous
  Country: US (occurrence: US)
  Receive Date: 20201201
  Receipt Date: 20201211
  Transmission Date: 20210114
  Serious: Yes (Hospitalization, Other)
  Sender: FDA-Public Use
  Company Number: US-LUNDBECK-DKLU3023125

PATIENT
  Age: 11 Year
  Sex: Male
  Weight: 21 kg

DRUGS (9)
  1. SABRIL [Suspect]
     Active Substance: VIGABATRIN
     Route: 048
     Dates: start: 201901
  2. SABRIL [Suspect]
     Active Substance: VIGABATRIN
     Indication: LENNOX-GASTAUT SYNDROME
     Route: 048
  3. DEPAKENE [Suspect]
     Active Substance: VALPROIC ACID
     Indication: SEIZURE
     Route: 048
  4. DIASTAT [Concomitant]
     Active Substance: DIAZEPAM
     Indication: SEIZURE
     Route: 065
  5. PROVENTIL [Concomitant]
     Active Substance: ALBUTEROL
     Indication: WHEEZING
     Route: 055
  6. DEPAKENE [Suspect]
     Active Substance: VALPROIC ACID
     Route: 048
  7. PROVENTIL [Concomitant]
     Active Substance: ALBUTEROL
     Indication: BRONCHOSPASM
  8. TRILEPTAL [Concomitant]
     Active Substance: OXCARBAZEPINE
     Indication: SEIZURE
  9. DEPAKENE [Suspect]
     Active Substance: VALPROIC ACID
     Route: 048

REACTIONS (2)
  - Seizure [Recovered/Resolved]
  - Anticonvulsant drug level decreased [Recovering/Resolving]

NARRATIVE: CASE EVENT DATE: 20201009
